FAERS Safety Report 14251926 (Version 1)
Quarter: 2017Q4

REPORT INFORMATION
  Report Type: Spontaneous
  Country: RU (occurrence: RU)
  Receive Date: 20171205
  Receipt Date: 20171205
  Transmission Date: 20180321
  Serious: Yes (Hospitalization, Other)
  Sender: FDA-Public Use
  Company Number: RU-ASTRAZENECA-2017SF22559

PATIENT
  Age: 54 Year
  Sex: Female
  Weight: 104 kg

DRUGS (2)
  1. FORXIGA [Suspect]
     Active Substance: DAPAGLIFLOZIN
     Indication: TYPE 2 DIABETES MELLITUS
     Route: 048
     Dates: start: 20170515, end: 20170703
  2. INSULIN [Concomitant]
     Active Substance: INSULIN NOS

REACTIONS (2)
  - Hyperglycaemia [Recovered/Resolved]
  - Renal cancer [Recovered/Resolved]

NARRATIVE: CASE EVENT DATE: 201706
